FAERS Safety Report 18079179 (Version 1)
Quarter: 2020Q3

REPORT INFORMATION
  Report Type: Spontaneous
  Country: US (occurrence: US)
  Receive Date: 20200728
  Receipt Date: 20200728
  Transmission Date: 20201103
  Serious: Yes (Other)
  Sender: FDA-Public Use
  Company Number: US-BAYER-2020-151868

PATIENT
  Age: 11 Year
  Sex: Female

DRUGS (5)
  1. MELATONIN [Suspect]
     Active Substance: MELATONIN
  2. LORATADINE. [Suspect]
     Active Substance: LORATADINE
  3. CLOBAZAM. [Suspect]
     Active Substance: CLOBAZAM
  4. DIPHENHYDRAMINE. [Suspect]
     Active Substance: DIPHENHYDRAMINE
  5. LORAZEPAM. [Suspect]
     Active Substance: LORAZEPAM
     Dosage: 2 MG

REACTIONS (1)
  - Hypersomnia [Recovered/Resolved]
